FAERS Safety Report 7253183 (Version 2)
Quarter: 2014Q3

REPORT INFORMATION
  Report Type: Spontaneous
  Country: US (occurrence: None)
  Receive Date: 20100113
  Receipt Date: 20140829
  Transmission Date: 20150326
  Serious: Yes (Hospitalization, Other)
  Sender: FDA-Public Use
  Company Number: 2010S1000039

PATIENT
  Age: 57 Year
  Sex: Female
  Weight: 79 kg

DRUGS (8)
  1. PERCOCET (PARACETAMOL, OXYCODONE HYDROCHLORIDE, OXYCODONE TEREPHTHALATE) [Concomitant]
  2. LYRICA [Concomitant]
     Active Substance: PREGABALIN
  3. PHOSPHO-SODA [Suspect]
     Active Substance: SODIUM PHOSPHATE, DIBASIC\SODIUM PHOSPHATE, MONOBASIC
     Indication: COLONOSCOPY
     Dosage: ; TOTAL; PO
     Route: 048
  4. PROZAC [Concomitant]
     Active Substance: FLUOXETINE HYDROCHLORIDE
  5. TRAZODONE [Concomitant]
     Active Substance: TRAZODONE HYDROCHLORIDE
  6. ATIVAN [Concomitant]
     Active Substance: LORAZEPAM
  7. WELLBUTRIN [Concomitant]
     Active Substance: BUPROPION HYDROCHLORIDE
  8. ZOCOR [Concomitant]
     Active Substance: SIMVASTATIN

REACTIONS (1)
  - Renal failure acute [None]

NARRATIVE: CASE EVENT DATE: 20080719
